FAERS Safety Report 19462615 (Version 2)
Quarter: 2021Q3

REPORT INFORMATION
  Report Type: Spontaneous
  Country: US (occurrence: US)
  Receive Date: 20210625
  Receipt Date: 20210811
  Transmission Date: 20211014
  Serious: Yes (Other)
  Sender: FDA-Public Use
  Company Number: US-TEVA-2021-US-1924710

PATIENT
  Sex: Female

DRUGS (2)
  1. NEFAZODONE [Suspect]
     Active Substance: NEFAZODONE
     Route: 065
  2. EFFEXOR [Suspect]
     Active Substance: VENLAFAXINE HYDROCHLORIDE
     Route: 065

REACTIONS (5)
  - Product availability issue [Unknown]
  - Sleep deficit [Unknown]
  - Intentional self-injury [Unknown]
  - Product use issue [Unknown]
  - Adverse event [Unknown]
